FAERS Safety Report 8493639-8 (Version None)
Quarter: 2012Q3

REPORT INFORMATION
  Report Type: 
  Country: None (occurrence: None)
  Receive Date: 20120706
  Receipt Date: 20120628
  Transmission Date: 20120928
  Serious: Yes (Hospitalization, Other)
  Sender: FDA-Public Use
  Company Number: US-ASTRAZENECA-2012SE44009

PATIENT
  Age: 69 Year
  Sex: Male
  Weight: 90.7 kg

DRUGS (6)
  1. MEDICATION FOR SLIGHT BP [Concomitant]
     Indication: HYPERTENSION
  2. SYMBICORT [Suspect]
     Indication: CHRONIC OBSTRUCTIVE PULMONARY DISEASE
     Dosage: 160/4.5 MCG TWO PUFFS IN THE MORNING AND TWO PUFFS AT NIGHT
     Route: 055
  3. SYMBICORT [Suspect]
     Indication: EMPHYSEMA
     Dosage: 160/4.5 MCG TWO PUFFS IN THE MORNING AND TWO PUFFS AT NIGHT
     Route: 055
  4. FOUR TO FIVE MEDICATIONS [Concomitant]
  5. MEDICATION FOR POST TRAUMATIC STRESS [Concomitant]
     Indication: POST-TRAUMATIC STRESS DISORDER
  6. AEROCHAMBER [Concomitant]

REACTIONS (12)
  - PNEUMONIA BACTERIAL [None]
  - PNEUMONIA [None]
  - ADVERSE EVENT [None]
  - ORAL CANDIDIASIS [None]
  - OROPHARYNGEAL PAIN [None]
  - APHAGIA [None]
  - WEIGHT DECREASED [None]
  - FEELING ABNORMAL [None]
  - POST-TRAUMATIC STRESS DISORDER [None]
  - HAEMOPTYSIS [None]
  - BODY HEIGHT DECREASED [None]
  - BLOOD PRESSURE [None]
